FAERS Safety Report 15665064 (Version 1)
Quarter: 2018Q4

REPORT INFORMATION
  Report Type: Report from Study
  Country: BR (occurrence: BR)
  Receive Date: 20181128
  Receipt Date: 20181128
  Transmission Date: 20190205
  Serious: Yes (Other)
  Sender: FDA-Public Use
  Company Number: PHHY2017BR042563

PATIENT
  Sex: Female
  Weight: 74 kg

DRUGS (2)
  1. RITALIN LA [Suspect]
     Active Substance: METHYLPHENIDATE HYDROCHLORIDE
     Indication: ATTENTION DEFICIT/HYPERACTIVITY DISORDER
     Dosage: 40 MG, UNK
     Route: 065
  2. RITALIN LA [Suspect]
     Active Substance: METHYLPHENIDATE HYDROCHLORIDE
     Dosage: 2 DF (10 MG), QD (NOT USE REGULARLY, USE ONLY IN THE TEST SEASON OR WHEN SHE WAS DISPERSED)
     Route: 048

REACTIONS (5)
  - Nervousness [Unknown]
  - Drug dependence [Unknown]
  - Restlessness [Unknown]
  - Psychiatric symptom [Unknown]
  - Anxiety [Unknown]
